FAERS Safety Report 11784018 (Version 1)
Quarter: 2015Q4

REPORT INFORMATION
  Report Type: Spontaneous
  Country: US (occurrence: US)
  Receive Date: 20151128
  Receipt Date: 20151128
  Transmission Date: 20160305
  Serious: No
  Sender: FDA-Public Use
  Company Number: US-009507513-1511USA014080

PATIENT
  Age: 22 Year
  Sex: Female
  Weight: 88.89 kg

DRUGS (1)
  1. NEXPLANON [Suspect]
     Active Substance: ETONOGESTREL
     Indication: CONTRACEPTION
     Dosage: 68 MG, EVERY 3 YEARS
     Route: 059
     Dates: end: 20151030

REACTIONS (4)
  - Device breakage [Unknown]
  - Haemorrhagic disorder [Unknown]
  - Weight increased [Unknown]
  - Product quality issue [Unknown]

NARRATIVE: CASE EVENT DATE: 201510
